FAERS Safety Report 24316451 (Version 1)
Quarter: 2024Q3

REPORT INFORMATION
  Report Type: Spontaneous
  Country: US (occurrence: None)
  Receive Date: 20240912
  Receipt Date: 20240912
  Transmission Date: 20241017
  Serious: Yes (Hospitalization)
  Sender: Public
  Company Number: None

PATIENT
  Sex: Female

DRUGS (1)
  1. PULMOZYME [Suspect]
     Active Substance: DORNASE ALFA
     Indication: Cystic fibrosis lung
     Dosage: OTHER QUANTITY : 1 VIAL;?FREQUENCY : DAILY;?
     Route: 055
     Dates: start: 202408

REACTIONS (1)
  - Infective pulmonary exacerbation of cystic fibrosis [None]
